FAERS Safety Report 6266853-X (Version None)
Quarter: 2009Q3

REPORT INFORMATION
  Report Type: 
  Country: None (occurrence: None)
  Receive Date: 20090710
  Receipt Date: 20090710
  Transmission Date: 20100115
  Serious: No
  Sender: FDA-Public Use
  Company Number: None

PATIENT
  Age: 20 Year
  Sex: Female
  Weight: 88 kg

DRUGS (1)
  1. PENICILLIN [Suspect]
     Dosage: 5 MU X 1 IV
     Route: 042
     Dates: start: 20090615

REACTIONS (3)
  - CHEST PAIN [None]
  - URTICARIA [None]
  - WHEEZING [None]
